FAERS Safety Report 5925774-X (Version None)
Quarter: 2008Q4

REPORT INFORMATION
  Report Type: 
  Country: None (occurrence: None)
  Receive Date: 20081021
  Receipt Date: 20081009
  Transmission Date: 20090506
  Serious: Yes (Hospitalization)
  Sender: FDA-Public Use
  Company Number: IT-ELI_LILLY_AND_COMPANY-IT200802003132

PATIENT
  Sex: Female

DRUGS (3)
  1. GEMZAR [Suspect]
     Indication: OVARIAN STROMAL CANCER
     Dosage: 1700 MG, OTHER (TOTALLY)
     Route: 042
     Dates: start: 20080125, end: 20080125
  2. CAELYX /00330901/ [Concomitant]
     Indication: OVARIAN STROMAL CANCER
     Dosage: 50 MG, OTHER (TOTALLY)
     Route: 042
     Dates: start: 20080125, end: 20080125
  3. EPREX [Concomitant]
     Indication: ANAEMIA
     Dosage: 40000 IU, WEEKLY (1/W)
     Dates: start: 20080111, end: 20080128

REACTIONS (1)
  - ACUTE MYOCARDIAL INFARCTION [None]
